FAERS Safety Report 18916097 (Version 1)
Quarter: 2021Q1

REPORT INFORMATION
  Report Type: Spontaneous
  Country: US (occurrence: US)
  Receive Date: 20210219
  Receipt Date: 20210219
  Transmission Date: 20210420
  Serious: Yes (Hospitalization)
  Sender: FDA-Public Use
  Company Number: None

PATIENT
  Age: 64 Year
  Sex: Female

DRUGS (15)
  1. LEVOFLOXACIN. [Concomitant]
     Active Substance: LEVOFLOXACIN
  2. BUDES/FORMOT [Concomitant]
  3. OXYCONTIN [Concomitant]
     Active Substance: OXYCODONE HYDROCHLORIDE
  4. AMOX/K CLAV [Concomitant]
     Active Substance: AMOXICILLIN\CLAVULANATE POTASSIUM
  5. BENZONATATE. [Concomitant]
     Active Substance: BENZONATATE
  6. PREDNISONE. [Concomitant]
     Active Substance: PREDNISONE
  7. VALSARTAN. [Concomitant]
     Active Substance: VALSARTAN
  8. CLOTRIMAZOLE. [Concomitant]
     Active Substance: CLOTRIMAZOLE
  9. CAPECITABINE. [Suspect]
     Active Substance: CAPECITABINE
     Indication: BREAST CANCER
     Dosage: ?          OTHER FREQUENCY:UNKNOWN;?
     Route: 048
  10. CARVEDILOL. [Concomitant]
     Active Substance: CARVEDILOL
  11. EFFER?K [Concomitant]
  12. ALBUTEROL. [Concomitant]
     Active Substance: ALBUTEROL
  13. FLUCONAZOLE. [Concomitant]
     Active Substance: FLUCONAZOLE
  14. ONDANSETRON [Concomitant]
     Active Substance: ONDANSETRON
  15. AZITHROMYCIN ANHYDROUS. [Concomitant]
     Active Substance: AZITHROMYCIN ANHYDROUS

REACTIONS (3)
  - Asthenia [None]
  - Stomatitis [None]
  - Feeding disorder [None]

NARRATIVE: CASE EVENT DATE: 20210202
